FAERS Safety Report 11257303 (Version 7)
Quarter: 2016Q3

REPORT INFORMATION
  Report Type: Report from Study
  Country: CA (occurrence: CA)
  Receive Date: 20150709
  Receipt Date: 20160831
  Transmission Date: 20161109
  Serious: Yes (Other)
  Sender: FDA-Public Use
  Company Number: CA-ROCHE-1217711

PATIENT
  Age: 27 Year
  Sex: Female
  Weight: 66 kg

DRUGS (16)
  1. METHOTREXATE. [Concomitant]
     Active Substance: METHOTREXATE
  2. HYDROXYCHLOROQUINE [Concomitant]
     Active Substance: HYDROXYCHLOROQUINE
  3. FOLIC ACID. [Concomitant]
     Active Substance: FOLIC ACID
  4. ACETAMINOPHEN. [Concomitant]
     Active Substance: ACETAMINOPHEN
     Indication: PREMEDICATION
     Route: 048
     Dates: start: 20140515
  5. TYLENOL WITH CODEINE [Concomitant]
     Active Substance: ACETAMINOPHEN\CODEINE PHOSPHATE
  6. ACTEMRA [Suspect]
     Active Substance: TOCILIZUMAB
     Indication: RHEUMATOID ARTHRITIS
     Route: 042
     Dates: start: 20130322
  7. CELEBREX [Concomitant]
     Active Substance: CELECOXIB
  8. ACTEMRA [Suspect]
     Active Substance: TOCILIZUMAB
     Route: 042
     Dates: start: 20130510, end: 20130823
  9. RITUXAN [Suspect]
     Active Substance: RITUXIMAB
     Indication: RHEUMATOID ARTHRITIS
     Dosage: LAST DOSE WAS RECEIVED ON 15/DEC/2014, 23/JUN/2015, 30/JAN/2016
     Route: 042
     Dates: start: 20140515
  10. ELTROXIN [Concomitant]
     Active Substance: LEVOTHYROXINE
  11. DIPHENHYDRAMINE HCL [Concomitant]
     Active Substance: DIPHENHYDRAMINE HYDROCHLORIDE
     Indication: PREMEDICATION
     Route: 048
     Dates: start: 20140515
  12. PREDNISONE. [Concomitant]
     Active Substance: PREDNISONE
     Dosage: 15-25 MG
     Route: 065
  13. VITAMIN D3 [Concomitant]
     Active Substance: CHOLECALCIFEROL
  14. RALIVIA [Concomitant]
     Active Substance: TRAMADOL HYDROCHLORIDE
  15. METHYLPREDNISOLONE. [Concomitant]
     Active Substance: METHYLPREDNISOLONE
     Indication: PREMEDICATION
     Route: 042
     Dates: start: 20140515, end: 20141215
  16. LYRICA [Concomitant]
     Active Substance: PREGABALIN

REACTIONS (15)
  - Fatigue [Unknown]
  - Blood pressure diastolic decreased [Unknown]
  - Erythema [Unknown]
  - Aphthous ulcer [Unknown]
  - Urticaria [Recovering/Resolving]
  - Oxygen saturation decreased [Unknown]
  - Macule [Not Recovered/Not Resolved]
  - Peripheral swelling [Unknown]
  - Headache [Unknown]
  - Hypotension [Unknown]
  - Arthritis [Not Recovered/Not Resolved]
  - Scab [Unknown]
  - Body temperature decreased [Unknown]
  - Depression [Recovering/Resolving]
  - Rheumatoid arthritis [Not Recovered/Not Resolved]

NARRATIVE: CASE EVENT DATE: 201308
